FAERS Safety Report 7364072-7 (Version None)
Quarter: 2011Q1

REPORT INFORMATION
  Report Type: 
  Country: None (occurrence: None)
  Receive Date: 20110321
  Receipt Date: 20110316
  Transmission Date: 20110831
  Serious: Yes (Other)
  Sender: FDA-Public Use
  Company Number: DE-PFIZER INC-2011058482

PATIENT
  Age: 40 Year
  Sex: Female

DRUGS (3)
  1. LYRICA [Suspect]
     Indication: EPILEPSY
     Dosage: 525 MG DAILY
     Dates: start: 20090201
  2. ZONEGRAN [Concomitant]
     Indication: EPILEPSY
     Dosage: UNK
  3. LYRICA [Suspect]
     Indication: GENERALISED ANXIETY DISORDER

REACTIONS (4)
  - MUSCULOSKELETAL STIFFNESS [None]
  - GAIT DISTURBANCE [None]
  - FALL [None]
  - ARTHRALGIA [None]
